FAERS Safety Report 6110093-1 (Version None)
Quarter: 2009Q1

REPORT INFORMATION
  Report Type: 
  Country: None (occurrence: None)
  Receive Date: 20090310
  Receipt Date: 20090304
  Transmission Date: 20090719
  Serious: Yes (Hospitalization)
  Sender: FDA-Public Use
  Company Number: NL-MERCK-0903NLD00003

PATIENT
  Age: 89 Year
  Sex: Female

DRUGS (4)
  1. FOSAMAX [Suspect]
     Indication: KYPHOSIS
     Route: 048
     Dates: start: 20081201
  2. FOSAMAX [Suspect]
     Indication: OSTEOPOROSIS
     Route: 048
     Dates: start: 20081201
  3. ASPIRIN CALCIUM [Interacting]
     Route: 065
  4. CYTARABINE AND DAUNORUBICIN [Concomitant]
     Route: 065

REACTIONS (2)
  - DRUG INTERACTION [None]
  - GASTROINTESTINAL HAEMORRHAGE [None]
